FAERS Safety Report 16410009 (Version 1)
Quarter: 2019Q3

REPORT INFORMATION
  Report Type: Spontaneous
  Country: US (occurrence: US)
  Receive Date: 20190607
  Receipt Date: 20190607
  Transmission Date: 20191004
  Serious: Yes (Death)
  Sender: FDA-Public Use
  Company Number: None

PATIENT
  Age: 50 Year
  Sex: Male
  Weight: 67.5 kg

DRUGS (2)
  1. KEYTRUDA [Suspect]
     Active Substance: PEMBROLIZUMAB
     Indication: NEOPLASM MALIGNANT
     Dosage: ?          OTHER FREQUENCY:EVERY FOUR WEEKS;?
     Route: 042
     Dates: start: 20181003, end: 20181024
  2. PAIN MEDICATION FOR CANCER PAIN [Concomitant]

REACTIONS (8)
  - Autoimmune disorder [None]
  - Product prescribing issue [None]
  - Haemoglobin decreased [None]
  - Lumbar vertebral fracture [None]
  - Fall [None]
  - Platelet count decreased [None]
  - Serotonin syndrome [None]
  - Metastases to soft tissue [None]

NARRATIVE: CASE EVENT DATE: 20181003
